FAERS Safety Report 8017963-8 (Version None)
Quarter: 2012Q1

REPORT INFORMATION
  Report Type: 
  Country: None (occurrence: None)
  Receive Date: 20120103
  Receipt Date: 20111228
  Transmission Date: 20120608
  Serious: No
  Sender: FDA-Public Use
  Company Number: US-JNJFOC-20110606097

PATIENT
  Sex: Female
  Weight: 172.37 kg

DRUGS (6)
  1. DURAGESIC-100 [Suspect]
     Route: 062
     Dates: start: 20110601
  2. DURAGESIC-100 [Suspect]
     Route: 062
     Dates: start: 20110601
  3. DURAGESIC-100 [Suspect]
     Indication: PARAPLEGIA
     Route: 062
     Dates: start: 20100101
  4. DURAGESIC-100 [Suspect]
     Indication: TREMOR
     Route: 062
     Dates: start: 20100101
  5. DURAGESIC-100 [Suspect]
     Route: 062
     Dates: start: 20100101
  6. DURAGESIC-100 [Suspect]
     Indication: PAIN
     Route: 062
     Dates: start: 20110601

REACTIONS (6)
  - DRUG ADMINISTERED AT INAPPROPRIATE SITE [None]
  - TREMOR [None]
  - PRODUCT ADHESION ISSUE [None]
  - PH BODY FLUID ABNORMAL [None]
  - WITHDRAWAL SYNDROME [None]
  - DECREASED APPETITE [None]
